FAERS Safety Report 9773133 (Version 1)
Quarter: 2013Q4

REPORT INFORMATION
  Report Type: Spontaneous
  Country: US (occurrence: None)
  Receive Date: 20131217
  Receipt Date: 20131217
  Transmission Date: 20140711
  Serious: Yes (Other)
  Sender: FDA-Public Use
  Company Number: AUR-APL-2013-10536

PATIENT
  Age: 25 Year
  Sex: Female

DRUGS (2)
  1. LEVETIRACETAM (LEVETIRACETAM) [Suspect]
     Indication: CONVULSION
  2. PHENYTOIN (PHENYTOIN) [Suspect]
     Indication: CONVULSION

REACTIONS (3)
  - Decreased appetite [None]
  - Pancreatitis acute [None]
  - No therapeutic response [None]
